FAERS Safety Report 7949380-0 (Version None)
Quarter: 2011Q4

REPORT INFORMATION
  Report Type: 
  Country: None (occurrence: None)
  Receive Date: 20111130
  Receipt Date: 20111123
  Transmission Date: 20120403
  Serious: Yes (Death, Hospitalization)
  Sender: FDA-Public Use
  Company Number: CA-GLAXOSMITHKLINE-A0949928A

PATIENT
  Sex: Male

DRUGS (4)
  1. VOTRIENT [Suspect]
     Indication: RENAL CANCER METASTATIC
     Dosage: 800MG PER DAY
     Route: 048
     Dates: start: 20110826
  2. PUFFERS [Concomitant]
  3. STEROID [Concomitant]
  4. HYDROMORPHONE HCL [Concomitant]

REACTIONS (6)
  - WEIGHT DECREASED [None]
  - ASCITES [None]
  - PNEUMONIA [None]
  - CHROMATURIA [None]
  - COUGH [None]
  - DEATH [None]
